FAERS Safety Report 8365473-0 (Version None)
Quarter: 2012Q2

REPORT INFORMATION
  Report Type: 
  Country: None (occurrence: None)
  Receive Date: 20120516
  Receipt Date: 20120508
  Transmission Date: 20120825
  Serious: Yes (Congenital Anomaly, Other)
  Sender: FDA-Public Use
  Company Number: PHHY2012DE039614

PATIENT

DRUGS (6)
  1. PREDNISONE TAB [Suspect]
     Route: 064
  2. FOSFOMYCIN [Suspect]
     Route: 064
  3. AZATHIOPRINE [Suspect]
     Route: 064
  4. TACROLIMUS [Suspect]
     Route: 064
  5. MYFORTIC [Concomitant]
     Route: 064
  6. CELLCEPT [Concomitant]
     Route: 064

REACTIONS (4)
  - PREMATURE BABY [None]
  - FOETAL EXPOSURE DURING PREGNANCY [None]
  - HYDRONEPHROSIS [None]
  - AUTISM [None]
